FAERS Safety Report 13679546 (Version 1)
Quarter: 2017Q2

REPORT INFORMATION
  Report Type: Spontaneous
  Country: FR (occurrence: FR)
  Receive Date: 20170622
  Receipt Date: 20170622
  Transmission Date: 20170830
  Serious: Yes (Other)
  Sender: FDA-Public Use
  Company Number: PHHY2017FR067260

PATIENT
  Age: 38 Year
  Sex: Female

DRUGS (5)
  1. VIVELLE-DOT [Suspect]
     Active Substance: ESTRADIOL
     Indication: INFERTILITY
     Dosage: 2 DF, EVERY 3 DAYS
     Route: 062
     Dates: start: 20170420, end: 20170524
  2. SPECIAFOLDINE [Concomitant]
     Active Substance: FOLIC ACID
     Indication: INFERTILITY
     Dosage: 0.4 MG, UNK
     Route: 065
     Dates: start: 20170420
  3. OESCLIM [Concomitant]
     Active Substance: ESTRADIOL
     Indication: INFERTILITY
     Dosage: 3 DF, QD
     Route: 065
  4. PROGESTERONE. [Concomitant]
     Active Substance: PROGESTERONE
     Indication: INFERTILITY
     Dosage: 4 DF, QD
     Route: 065
     Dates: start: 20170420
  5. VIVELLE-DOT [Suspect]
     Active Substance: ESTRADIOL
     Indication: IN VITRO FERTILISATION
     Dosage: 2 DF, EVERY 3 DAYS
     Route: 062
     Dates: start: 201701

REACTIONS (3)
  - Maternal exposure during pregnancy [Unknown]
  - Abortion spontaneous [Unknown]
  - Off label use [Unknown]

NARRATIVE: CASE EVENT DATE: 201701
